FAERS Safety Report 20148427 (Version 4)
Quarter: 2023Q2

REPORT INFORMATION
  Report Type: Spontaneous
  Country: GB (occurrence: GB)
  Receive Date: 20211204
  Receipt Date: 20230623
  Transmission Date: 20230721
  Serious: Yes (Life-Threatening, Hospitalization, Disabling, Other)
  Sender: FDA-Public Use
  Company Number: GB-JNJFOC-20211126340

PATIENT
  Age: 31 Year
  Sex: Female
  Weight: 63.5 kg

DRUGS (60)
  1. CODEINE PHOSPHATE [Suspect]
     Active Substance: CODEINE PHOSPHATE
     Indication: Analgesic therapy
     Dosage: 15-30 MG
     Route: 048
     Dates: start: 20110615, end: 20110723
  2. CODEINE PHOSPHATE [Suspect]
     Active Substance: CODEINE PHOSPHATE
     Indication: Serotonin syndrome
     Dosage: UNK
     Route: 065
     Dates: start: 20110224, end: 20110410
  3. CODEINE PHOSPHATE [Suspect]
     Active Substance: CODEINE PHOSPHATE
     Dosage: UNK
     Route: 048
     Dates: start: 2008, end: 2008
  4. CODEINE PHOSPHATE [Suspect]
     Active Substance: CODEINE PHOSPHATE
     Dosage: UNK
     Route: 048
     Dates: start: 2002, end: 2002
  5. DOMPERIDONE [Suspect]
     Active Substance: DOMPERIDONE
     Indication: Product used for unknown indication
     Dosage: UNK
     Route: 065
  6. MIRTAZAPINE [Suspect]
     Active Substance: MIRTAZAPINE
     Indication: Depression
     Dosage: 30 MG, QD, (30 MG IN THE DAY AND 15 MG AT NIGHT),
     Route: 048
     Dates: start: 20101007, end: 20101012
  7. MIRTAZAPINE [Suspect]
     Active Substance: MIRTAZAPINE
     Indication: Psychotic disorder
     Dosage: 15 MG, 2 TIMES PER DAY
     Route: 048
     Dates: start: 20100923, end: 20101108
  8. MIRTAZAPINE [Suspect]
     Active Substance: MIRTAZAPINE
     Dosage: 30MG IN THE DAY AND 15MG AT NIGHT
     Route: 065
     Dates: start: 20110224, end: 20110506
  9. MIRTAZAPINE [Suspect]
     Active Substance: MIRTAZAPINE
     Dosage: 30 UNK
     Route: 048
     Dates: start: 20100930, end: 20101108
  10. MIRTAZAPINE [Suspect]
     Active Substance: MIRTAZAPINE
     Dosage: 30 MG, ONCE PER DAY
     Route: 048
  11. PAROXETINE [Suspect]
     Active Substance: PAROXETINE
     Indication: Post-traumatic stress disorder
     Dosage: UNK
     Route: 048
     Dates: start: 1996, end: 201105
  12. PAROXETINE [Suspect]
     Active Substance: PAROXETINE
     Indication: Depression
     Dosage: 60 MG, ONCE PER DAY
     Route: 048
     Dates: start: 1997, end: 201105
  13. PAROXETINE [Suspect]
     Active Substance: PAROXETINE
     Dosage: 60 MILLIGRAM, ONCE A DAY
     Route: 048
     Dates: start: 1999, end: 201105
  14. PAROXETINE [Suspect]
     Active Substance: PAROXETINE
     Dosage: 40 MG, ONCE PER DAY
     Route: 048
     Dates: start: 19990801, end: 20110706
  15. PAROXETINE [Suspect]
     Active Substance: PAROXETINE
     Dosage: 60 MG, ONCE PER DAY
     Route: 048
     Dates: start: 19990801, end: 201105
  16. PAROXETINE [Suspect]
     Active Substance: PAROXETINE
     Dosage: UNK
     Route: 048
     Dates: start: 201012
  17. PAROXETINE [Suspect]
     Active Substance: PAROXETINE
     Dosage: 20 MG THREE TIMES A DAY
     Route: 048
     Dates: start: 201105, end: 20110706
  18. PAROXETINE [Suspect]
     Active Substance: PAROXETINE
     Dosage: UNK
     Route: 048
     Dates: start: 1999
  19. QUETIAPINE [Suspect]
     Active Substance: QUETIAPINE
     Indication: Psychotic disorder
     Dosage: 300 MILLIGRAM
     Route: 048
     Dates: start: 20110224, end: 20110506
  20. TRAMADOL [Suspect]
     Active Substance: TRAMADOL
     Indication: Product used for unknown indication
     Dosage: 1 DOSAGE FORM
     Route: 065
     Dates: start: 20110725
  21. TRAMADOL [Suspect]
     Active Substance: TRAMADOL
     Dosage: 20 MILLIGRAM
     Route: 065
     Dates: start: 20110725
  22. TRAMADOL [Suspect]
     Active Substance: TRAMADOL
     Dosage: 4 DOSAGE FORM
     Route: 048
  23. TRAMADOL [Suspect]
     Active Substance: TRAMADOL
     Dosage: 4 MILLIGRAM, ONCE A DAY
     Route: 048
     Dates: start: 20101201, end: 20101201
  24. TRAMADOL [Suspect]
     Active Substance: TRAMADOL
     Dosage: 5 MILLIGRAM
     Route: 044
     Dates: start: 1995
  25. TRAMADOL [Suspect]
     Active Substance: TRAMADOL
     Dosage: 4 CYCLICAL QD
     Route: 048
     Dates: start: 20080722
  26. TRAMADOL [Suspect]
     Active Substance: TRAMADOL
     Dosage: UNK
     Route: 048
     Dates: start: 20081201, end: 20101210
  27. TRAMADOL [Suspect]
     Active Substance: TRAMADOL
     Dosage: UNK
     Route: 065
     Dates: start: 2008, end: 2009
  28. TRAMADOL [Suspect]
     Active Substance: TRAMADOL
     Dosage: 8 MILLIGRAM
     Route: 065
  29. TRAMADOL [Suspect]
     Active Substance: TRAMADOL
     Dosage: UNK
     Route: 065
  30. AMITRIPTYLINE [Suspect]
     Active Substance: AMITRIPTYLINE
     Indication: Neuralgia
     Dosage: 25 MILLIGRAM, ONCE A DAY
     Route: 065
     Dates: start: 20110810
  31. AMITRIPTYLINE [Suspect]
     Active Substance: AMITRIPTYLINE
     Indication: Drug withdrawal syndrome
     Dosage: UNK/AT NIGHT
     Route: 065
  32. AMITRIPTYLINE [Suspect]
     Active Substance: AMITRIPTYLINE
     Indication: Serotonin syndrome
  33. AMITRIPTYLINE [Suspect]
     Active Substance: AMITRIPTYLINE
     Indication: Muscle spasms
  34. CLONAZEPAM [Suspect]
     Active Substance: CLONAZEPAM
     Indication: Sedation
     Dosage: UNK, UNK (UNSURE)
     Route: 048
     Dates: start: 20110224, end: 20110410
  35. DIAZEPAM [Suspect]
     Active Substance: DIAZEPAM
     Indication: Muscle spasms
     Dosage: 5 MG, 4 TIMES PER DAY (20 MG, QD 5 MILLIGRAM, QID (5 MG QDS AND NOW)
     Route: 065
     Dates: start: 20110725, end: 20110725
  36. DIAZEPAM [Suspect]
     Active Substance: DIAZEPAM
     Indication: Serotonin syndrome
     Dosage: 8 MILLIGRAM, ONCE A DAY
     Route: 065
  37. DIAZEPAM [Suspect]
     Active Substance: DIAZEPAM
     Indication: Depression
  38. LORAZEPAM [Suspect]
     Active Substance: LORAZEPAM
     Indication: Sedation
     Dosage: 1 MG, 4 TIMES PER DAY
     Route: 048
     Dates: start: 20110224, end: 20110410
  39. LORAZEPAM [Suspect]
     Active Substance: LORAZEPAM
     Dosage: 1 MILLIGRAM, ONCE A DAY
     Route: 048
     Dates: start: 20110523, end: 20110627
  40. LORAZEPAM [Suspect]
     Active Substance: LORAZEPAM
     Dosage: 4 MILLIGRAM
     Route: 048
     Dates: start: 20110224, end: 20110404
  41. LORAZEPAM [Suspect]
     Active Substance: LORAZEPAM
     Dosage: UNK
     Route: 048
     Dates: start: 20110202, end: 20110410
  42. LORAZEPAM [Suspect]
     Active Substance: LORAZEPAM
     Dosage: 1 MG, UNK
     Route: 048
     Dates: start: 20110725
  43. OMEPRAZOLE [Suspect]
     Active Substance: OMEPRAZOLE
     Indication: Dyspepsia
     Dosage: 20 MG, ONCE PER DAY (Q24H)
     Route: 048
     Dates: start: 20110525
  44. OMEPRAZOLE [Suspect]
     Active Substance: OMEPRAZOLE
     Dosage: 20 MG, ONCE PER DAY
     Route: 048
  45. PHOSPHORUS [Suspect]
     Active Substance: PHOSPHORUS
     Indication: Product used for unknown indication
     Dosage: UNK
     Route: 065
  46. PHOSPHORUS [Suspect]
     Active Substance: PHOSPHORUS
     Dosage: UNK
  47. PROCYCLIDINE [Suspect]
     Active Substance: PROCYCLIDINE
     Indication: Oculogyric crisis
     Dosage: 25 MILLIGRAM, ONCE A DAY
     Route: 048
     Dates: start: 1995, end: 1996
  48. PROCYCLIDINE [Suspect]
     Active Substance: PROCYCLIDINE
     Indication: Extrapyramidal disorder
     Dosage: 20 MILLIGRAM
     Route: 048
     Dates: start: 20110324, end: 20110506
  49. PROCYCLIDINE [Suspect]
     Active Substance: PROCYCLIDINE
     Dosage: UNK
     Route: 065
     Dates: start: 20110415
  50. PROCYCLIDINE [Suspect]
     Active Substance: PROCYCLIDINE
     Dosage: 5 MILLIGRAM, ONCE A DAY
     Route: 048
     Dates: start: 20110503, end: 20110510
  51. PROCYCLIDINE [Suspect]
     Active Substance: PROCYCLIDINE
     Dosage: 15 MILLIGRAM, ONCE A DAY
     Route: 048
     Dates: start: 20110503, end: 20110510
  52. PAROXETINE HYDROCHLORIDE [Suspect]
     Active Substance: PAROXETINE HYDROCHLORIDE
     Indication: Depression
     Dosage: INTERRUPTED
     Route: 048
     Dates: start: 201105, end: 20110706
  53. PAROXETINE HYDROCHLORIDE [Suspect]
     Active Substance: PAROXETINE HYDROCHLORIDE
     Indication: Product used for unknown indication
     Dosage: 60 MG, ONCE PER DAY (20 MG, THREE TIMES PER DAY)
     Route: 048
     Dates: start: 19990801, end: 201105
  54. PAROXETINE HYDROCHLORIDE [Suspect]
     Active Substance: PAROXETINE HYDROCHLORIDE
     Dosage: INTERRUPTED
     Route: 048
     Dates: start: 1997, end: 201105
  55. PAROXETINE HYDROCHLORIDE [Suspect]
     Active Substance: PAROXETINE HYDROCHLORIDE
     Dosage: UNK
     Route: 048
     Dates: start: 201012
  56. PAROXETINE HYDROCHLORIDE [Suspect]
     Active Substance: PAROXETINE HYDROCHLORIDE
     Dosage: 20 MG BID
     Route: 048
     Dates: start: 2011, end: 20110706
  57. PAROXETINE HYDROCHLORIDE [Suspect]
     Active Substance: PAROXETINE HYDROCHLORIDE
     Dosage: UNK
     Route: 048
     Dates: start: 1999
  58. PAROXETINE HYDROCHLORIDE [Suspect]
     Active Substance: PAROXETINE HYDROCHLORIDE
     Dosage: INTERRUPTED
     Route: 048
     Dates: start: 200812, end: 201012
  59. PAROXETINE HYDROCHLORIDE [Suspect]
     Active Substance: PAROXETINE HYDROCHLORIDE
     Dosage: 40 MG, ONCE PER DAY
     Route: 048
  60. SEROQUEL [Suspect]
     Active Substance: QUETIAPINE FUMARATE
     Indication: Product used for unknown indication
     Dosage: 300 MILLIGRAM
     Route: 048
     Dates: start: 20110224, end: 20110506

REACTIONS (91)
  - Decreased appetite [Unknown]
  - Hallucinations, mixed [Unknown]
  - Blood sodium decreased [Unknown]
  - Vision blurred [Unknown]
  - Contusion [Unknown]
  - Cogwheel rigidity [Unknown]
  - Confusional state [Not Recovered/Not Resolved]
  - Cyanosis [Unknown]
  - Delirium [Unknown]
  - Depersonalisation/derealisation disorder [Not Recovered/Not Resolved]
  - Dissociation [Not Recovered/Not Resolved]
  - Speech disorder [Unknown]
  - Disorientation [Not Recovered/Not Resolved]
  - Drooling [Unknown]
  - Somnolence [Unknown]
  - Drug interaction [Unknown]
  - Toxicity to various agents [Unknown]
  - Dyskinesia [Unknown]
  - Dystonia [Unknown]
  - Tinnitus [Unknown]
  - Emotional disorder [Unknown]
  - Eye pain [Unknown]
  - Swelling face [Unknown]
  - Feeling of body temperature change [Unknown]
  - Feeling of despair [Unknown]
  - Derealisation [Not Recovered/Not Resolved]
  - Pyrexia [Unknown]
  - Gastric pH decreased [Unknown]
  - Heart rate increased [Unknown]
  - Incontinence [Not Recovered/Not Resolved]
  - Feeling jittery [Unknown]
  - Arthralgia [Unknown]
  - Limb injury [Unknown]
  - Musculoskeletal stiffness [Not Recovered/Not Resolved]
  - Sensory loss [Unknown]
  - Mania [Unknown]
  - Menstrual disorder [Unknown]
  - Disturbance in attention [Unknown]
  - Mood swings [Unknown]
  - Muscle disorder [Unknown]
  - Muscle spasms [Not Recovered/Not Resolved]
  - Neuroleptic malignant syndrome [Unknown]
  - Nightmare [Unknown]
  - Hypoaesthesia oral [Unknown]
  - Hypoaesthesia [Not Recovered/Not Resolved]
  - Eye pain [Unknown]
  - Pallor [Unknown]
  - Paralysis [Unknown]
  - Paraesthesia [Unknown]
  - Premature labour [Unknown]
  - Psychotic disorder [Recovered/Resolved]
  - Mydriasis [Unknown]
  - Restless legs syndrome [Not Recovered/Not Resolved]
  - Muscle rigidity [Unknown]
  - Schizophrenia [Unknown]
  - Serotonin syndrome [Not Recovered/Not Resolved]
  - Illness [Unknown]
  - Skin discolouration [Not Recovered/Not Resolved]
  - Sleep disorder [Unknown]
  - Parosmia [Unknown]
  - Suicidal ideation [Not Recovered/Not Resolved]
  - Hyperhidrosis [Unknown]
  - Swollen tongue [Unknown]
  - H1N1 influenza [Unknown]
  - Tachycardia [Unknown]
  - Fatigue [Not Recovered/Not Resolved]
  - Tremor [Not Recovered/Not Resolved]
  - Balance disorder [Unknown]
  - Visual impairment [Unknown]
  - Agitation [Unknown]
  - Anxiety [Unknown]
  - Seizure [Not Recovered/Not Resolved]
  - Depression [Unknown]
  - Diarrhoea [Unknown]
  - Dizziness [Unknown]
  - Headache [Unknown]
  - Pruritus [Unknown]
  - Restlessness [Not Recovered/Not Resolved]
  - Urinary retention [Unknown]
  - Vomiting [Unknown]
  - Asthenia [Unknown]
  - Exposure during pregnancy [Unknown]
  - Drug withdrawal syndrome [Unknown]
  - Dyspnoea [Unknown]
  - Gait disturbance [Unknown]
  - Aphasia [Not Recovered/Not Resolved]
  - Paralysis [Unknown]
  - Off label use [Unknown]
  - Maternal exposure during pregnancy [Unknown]
  - Drug ineffective [Unknown]
  - Therapeutic product ineffective [Unknown]

NARRATIVE: CASE EVENT DATE: 20030101
